FAERS Safety Report 21634529 (Version 2)
Quarter: 2022Q4

REPORT INFORMATION
  Report Type: Report from Study
  Country: CA (occurrence: CA)
  Receive Date: 20221123
  Receipt Date: 20221208
  Transmission Date: 20230112
  Serious: Yes (Death, Other)
  Sender: FDA-Public Use
  Company Number: CA-BAYER-2022A159609

PATIENT
  Age: 20 Year
  Sex: Female

DRUGS (2)
  1. STIVARGA [Suspect]
     Active Substance: REGORAFENIB
     Indication: Ewing^s sarcoma
     Dosage: 160 MG
     Route: 048
     Dates: start: 202204
  2. STIVARGA [Suspect]
     Active Substance: REGORAFENIB
     Indication: Ewing^s sarcoma
     Dosage: 120 MG
     Dates: end: 202206

REACTIONS (4)
  - Sarcoma [Fatal]
  - Cytopenia [None]
  - Infection [None]
  - Off label use [None]
